FAERS Safety Report 8531860-0 (Version None)
Quarter: 2012Q3

REPORT INFORMATION
  Report Type: 
  Country: None (occurrence: None)
  Receive Date: 20120723
  Receipt Date: 20120709
  Transmission Date: 20120928
  Serious: Yes (Death)
  Sender: FDA-Public Use
  Company Number: US-MYLANLABS-2008S1011805

PATIENT
  Age: 49 Year
  Sex: Female
  Weight: 62.14 kg

DRUGS (21)
  1. TRAZODONE HYDROCHLORIDE [Concomitant]
  2. MINOCYCLINE HCL [Concomitant]
  3. WELLBUTRIN XL [Concomitant]
  4. BLACK COHOSH /01456801/ [Concomitant]
  5. HYDROXYZINE PAM [Concomitant]
  6. RIFAMPIN [Concomitant]
  7. VITAMIN B6 [Concomitant]
  8. FENTANYL-100 [Suspect]
     Indication: PAIN
     Route: 062
     Dates: end: 20051025
  9. PROMETHAZINE [Concomitant]
  10. DEXAMETHASONE [Concomitant]
  11. PROTONIX [Concomitant]
  12. ZOFRAN [Concomitant]
  13. PROPOXYPHENE NAPSYLATE W/ ACETAMINOPHEN [Concomitant]
     Dosage: 100MG/650MG
  14. LEXAPRO [Concomitant]
  15. FORADIL [Concomitant]
  16. TRIAMTERENE AND HYDROCHLOROTHIAZIDE [Concomitant]
  17. HYDROCODONE BITARTRATE AND ACETAMINOPHEN [Concomitant]
  18. CLINDAMYCIN [Concomitant]
  19. FLAXSEED [Concomitant]
  20. SOY [Concomitant]
  21. METRONIDAZOLE [Concomitant]

REACTIONS (2)
  - TOXICITY TO VARIOUS AGENTS [None]
  - OVERDOSE [None]
